FAERS Safety Report 4321911-1 (Version None)
Quarter: 2004Q1

REPORT INFORMATION
  Report Type: 
  Country: None (occurrence: None)
  Receive Date: 20040316
  Receipt Date: 20040305
  Transmission Date: 20041129
  Serious: Yes (Death)
  Sender: FDA-Public Use
  Company Number: 2004SA000038

PATIENT
  Sex: Female

DRUGS (7)
  1. THYMOGLOBULIN [Suspect]
     Indication: IMMUNOSUPPRESSION
     Dosage: 2 MG/KG
  2. METHYLPREDNISONE [Concomitant]
  3. PREDNISONE [Concomitant]
  4. TACROLIMUS [Concomitant]
  5. VALGANCICLOVIR [Concomitant]
  6. FLUCONAZOLE [Concomitant]
  7. SEPTRA SS [Concomitant]

REACTIONS (6)
  - BONE MARROW DEPRESSION [None]
  - COMPLICATIONS OF TRANSPLANT SURGERY [None]
  - HEPATIC ENZYME INCREASED [None]
  - HEPATIC HAEMORRHAGE [None]
  - HEPATIC NECROSIS [None]
  - PYREXIA [None]
